FAERS Safety Report 10414341 (Version 1)
Quarter: 2014Q3

REPORT INFORMATION
  Report Type: Spontaneous
  Country: FR (occurrence: FR)
  Receive Date: 20140828
  Receipt Date: 20140828
  Transmission Date: 20150326
  Serious: Yes (Hospitalization)
  Sender: FDA-Public Use
  Company Number: FR-ACCORD-025570

PATIENT
  Age: 45 Year
  Sex: Female
  Weight: 66 kg

DRUGS (1)
  1. ACCORD DOCETAXEL [Suspect]
     Active Substance: DOCETAXEL
     Indication: PRODUCT USED FOR UNKNOWN INDICATION
     Route: 042
     Dates: start: 20140723, end: 20140723

REACTIONS (3)
  - No adverse event [Unknown]
  - Incorrect dose administered [Unknown]
  - Drug dispensing error [Unknown]

NARRATIVE: CASE EVENT DATE: 20140723
